FAERS Safety Report 4408548-0 (Version None)
Quarter: 2004Q3

REPORT INFORMATION
  Report Type: 
  Country: None (occurrence: None)
  Receive Date: 20040726
  Receipt Date: 20040526
  Transmission Date: 20050211
  Serious: Yes (Hospitalization)
  Sender: FDA-Public Use
  Company Number: 2004UW11447

PATIENT
  Age: 47 Year
  Sex: Female

DRUGS (3)
  1. CRESTOR [Suspect]
     Dosage: 10 MG QD PO
     Route: 048
  2. SERZONE [Suspect]
     Dosage: 200 MG QAM
  3. SERZONE [Suspect]
     Dosage: 400 MG HS

REACTIONS (3)
  - DEPRESSION [None]
  - HEPATITIS [None]
  - RHABDOMYOLYSIS [None]
